FAERS Safety Report 12626292 (Version 1)
Quarter: 2016Q3

REPORT INFORMATION
  Report Type: Spontaneous
  Country: CA (occurrence: CA)
  Receive Date: 20160805
  Receipt Date: 20160805
  Transmission Date: 20161109
  Serious: Yes (Other)
  Sender: FDA-Public Use
  Company Number: CA-HQ SPECIALTY-CA-2016INT000695

PATIENT
  Age: 53 Year
  Sex: Female

DRUGS (7)
  1. XELJANZ [Suspect]
     Active Substance: TOFACITINIB CITRATE
     Dosage: AT NIGHT (5 MG, 1 IN 1 D)
     Route: 048
  2. XELJANZ [Suspect]
     Active Substance: TOFACITINIB CITRATE
     Dosage: 10 MG (5 MG, 2 IN 1 D)
     Route: 048
     Dates: start: 201603, end: 20160413
  3. XELJANZ [Suspect]
     Active Substance: TOFACITINIB CITRATE
     Dosage: 5 MG (5 MG, 1 IN 1 D)
     Route: 048
     Dates: start: 20160210, end: 201602
  4. XELJANZ [Suspect]
     Active Substance: TOFACITINIB CITRATE
     Dosage: IN MORNING (5 MG, 1 IN 1 D)
     Route: 048
  5. PLAQUENIL                          /00072602/ [Concomitant]
     Active Substance: HYDROXYCHLOROQUINE DIPHOSPHATE
     Indication: RHEUMATOID ARTHRITIS
     Dosage: UNK
     Route: 065
  6. METHOTREXATE SODIUM. [Suspect]
     Active Substance: METHOTREXATE SODIUM
     Indication: RHEUMATOID ARTHRITIS
     Dosage: 1.4286 MG (10 MG,1 IN 1 W)
     Route: 048
  7. XELJANZ [Suspect]
     Active Substance: TOFACITINIB CITRATE
     Indication: RHEUMATOID ARTHRITIS
     Dosage: 10 MG (5 MG, 2 IN 1 D)
     Route: 048
     Dates: start: 20150713

REACTIONS (13)
  - Dry throat [Unknown]
  - Urine flow decreased [Not Recovered/Not Resolved]
  - Sinusitis [Unknown]
  - Urinary tract infection [Not Recovered/Not Resolved]
  - Blood cholesterol increased [Not Recovered/Not Resolved]
  - Rheumatoid arthritis [Not Recovered/Not Resolved]
  - Productive cough [Not Recovered/Not Resolved]
  - Throat tightness [Not Recovered/Not Resolved]
  - Fatigue [Not Recovered/Not Resolved]
  - White blood cell count increased [Not Recovered/Not Resolved]
  - Dizziness [Recovering/Resolving]
  - Balance disorder [Not Recovered/Not Resolved]
  - Dyspnoea [Not Recovered/Not Resolved]

NARRATIVE: CASE EVENT DATE: 201512
